FAERS Safety Report 8065283-8 (Version None)
Quarter: 2012Q1

REPORT INFORMATION
  Report Type: 
  Country: None (occurrence: None)
  Receive Date: 20120111
  Receipt Date: 20111230
  Transmission Date: 20120608
  Serious: Yes (Other)
  Sender: FDA-Public Use
  Company Number: 2011030566

PATIENT
  Age: 6 Year
  Sex: Male

DRUGS (4)
  1. PRIVIGEN [Suspect]
     Indication: FOCAL SEGMENTAL GLOMERULOSCLEROSIS
     Dosage: 20 G, 0.4 ML/MIN INTRAVENOUS (NOT OTHERWISE SPECIFIED)
     Route: 042
     Dates: start: 20111124
  2. PRIVIGEN [Suspect]
     Indication: CONGENITAL NEPHROTIC SYNDROME
     Dosage: 20 G, 0.4 ML/MIN INTRAVENOUS (NOT OTHERWISE SPECIFIED)
     Route: 042
     Dates: start: 20111124
  3. NEORECORMON (EPOETIN BETA) [Concomitant]
  4. ALBUMIN (HUMAN) [Concomitant]

REACTIONS (2)
  - ANAEMIA [None]
  - OFF LABEL USE [None]
